FAERS Safety Report 14665682 (Version 1)
Quarter: 2018Q1

REPORT INFORMATION
  Report Type: Spontaneous
  Country: CA (occurrence: CA)
  Receive Date: 20180321
  Receipt Date: 20180321
  Transmission Date: 20180509
  Serious: Yes (Disabling, Other)
  Sender: FDA-Public Use
  Company Number: CA-BAYER-2018-051483

PATIENT
  Age: 38 Year
  Sex: Female
  Weight: 65.76 kg

DRUGS (2)
  1. MIRENA [Suspect]
     Active Substance: LEVONORGESTREL
  2. MIRENA [Suspect]
     Active Substance: LEVONORGESTREL
     Dosage: 20 MCG/24HR, CONT
     Route: 015

REACTIONS (10)
  - Visual impairment [Unknown]
  - Back pain [Unknown]
  - Weight increased [Unknown]
  - Depression [Unknown]
  - Vertigo [Unknown]
  - Deafness [Unknown]
  - Dizziness [Unknown]
  - Headache [Unknown]
  - Loss of libido [Unknown]
  - Abdominal pain [Unknown]
